FAERS Safety Report 8436836-X (Version None)
Quarter: 2012Q2

REPORT INFORMATION
  Report Type: 
  Country: None (occurrence: None)
  Receive Date: 20120614
  Receipt Date: 20120605
  Transmission Date: 20120825
  Serious: Yes (Other)
  Sender: FDA-Public Use
  Company Number: US-ASTRAZENECA-2012SE34840

PATIENT
  Age: 41 Year
  Sex: Female
  Weight: 81.6 kg

DRUGS (14)
  1. SEROQUEL XR [Suspect]
     Route: 048
     Dates: start: 20020101
  2. SEROQUEL XR [Suspect]
     Route: 048
  3. XANAX [Concomitant]
  4. AMBIENT [Concomitant]
  5. TRAZODONE HCL [Concomitant]
  6. SEROQUEL XR [Suspect]
     Route: 048
     Dates: start: 20020101
  7. SEROQUEL XR [Suspect]
     Route: 048
     Dates: start: 20020101
  8. SEROQUEL XR [Suspect]
     Indication: BIPOLAR DISORDER
     Route: 048
  9. SEROQUEL XR [Suspect]
     Indication: PSYCHOTIC DISORDER
     Route: 048
  10. SEROQUEL XR [Suspect]
     Indication: AGORAPHOBIA
     Route: 048
  11. SEROQUEL XR [Suspect]
     Route: 048
  12. SEROQUEL XR [Suspect]
     Route: 048
  13. GABAPENTIN [Concomitant]
  14. TOPAMAX [Concomitant]

REACTIONS (10)
  - INSOMNIA [None]
  - TACHYPHRENIA [None]
  - INTENTIONAL DRUG MISUSE [None]
  - BURNS THIRD DEGREE [None]
  - MENTAL DISORDER [None]
  - HYPERTENSION [None]
  - STRESS [None]
  - WEIGHT INCREASED [None]
  - WITHDRAWAL SYNDROME [None]
  - DIZZINESS [None]
